FAERS Safety Report 4772699-1 (Version None)
Quarter: 2005Q3

REPORT INFORMATION
  Report Type: 
  Country: None (occurrence: None)
  Receive Date: 20050915
  Receipt Date: 20050915
  Transmission Date: 20060218
  Serious: Yes (Other)
  Sender: FDA-Public Use
  Company Number: None

PATIENT
  Sex: Male
  Weight: 69.8539 kg

DRUGS (10)
  1. RISPERIDONE [Suspect]
     Indication: DEMENTIA
     Dosage: 0.25MG QHS
  2. LISINOPRIL [Concomitant]
  3. METOPROLOL [Concomitant]
  4. TRAZODONE [Concomitant]
  5. MIRTAZAPINE [Concomitant]
  6. LOVASTATIN [Concomitant]
  7. GLYBURIDE [Concomitant]
  8. GABAPENTIN [Concomitant]
  9. ASPIRIN [Concomitant]
  10. COMBIVENT [Concomitant]

REACTIONS (3)
  - ABNORMAL BEHAVIOUR [None]
  - MUSCLE RIGIDITY [None]
  - TREMOR [None]
